FAERS Safety Report 7335930-4 (Version None)
Quarter: 2011Q1

REPORT INFORMATION
  Report Type: 
  Country: None (occurrence: None)
  Receive Date: 20110217
  Receipt Date: 20100121
  Transmission Date: 20110831
  Serious: Yes (Other)
  Sender: FDA-Public Use
  Company Number: AL2010004

PATIENT
  Sex: Female

DRUGS (5)
  1. STACHBOTRYS CHARTARUM, 1:20 W/V [Suspect]
  2. CORTISONE [Concomitant]
  3. XYZAL [Concomitant]
  4. FLOVENT [Concomitant]
  5. ALBUTEROL [Concomitant]

REACTIONS (8)
  - RHINORRHOEA [None]
  - DYSPNOEA [None]
  - ACCIDENTAL EXPOSURE [None]
  - PRODUCT CONTAINER ISSUE [None]
  - MALAISE [None]
  - SNEEZING [None]
  - NAUSEA [None]
  - PRODUCT CONTAMINATION [None]
